FAERS Safety Report 13048149 (Version 1)
Quarter: 2016Q4

REPORT INFORMATION
  Report Type: Spontaneous
  Country: IN (occurrence: IN)
  Receive Date: 20161220
  Receipt Date: 20161220
  Transmission Date: 20170207
  Serious: Yes (Disabling)
  Sender: FDA-Public Use
  Company Number: IN-UPSHER-SMITH LABORATORIES, INC.-16002496

PATIENT
  Age: 44 Year
  Sex: Male

DRUGS (3)
  1. FLUPHENAZINE DECANOATE. [Concomitant]
     Active Substance: FLUPHENAZINE DECANOATE
     Indication: SCHIZOPHRENIA
     Dosage: 25 MG, FORTNIGHTLY
  2. CHLORPROMAZINE HYDROCHLORIDE. [Suspect]
     Active Substance: CHLORPROMAZINE HYDROCHLORIDE
     Indication: SCHIZOPHRENIA
     Dosage: 400 MG, QD
     Route: 048
  3. TRIHEXYPHENIDYL [Concomitant]
     Active Substance: TRIHEXYPHENIDYL
     Indication: SCHIZOPHRENIA
     Dosage: 4 MG, QD
     Route: 048

REACTIONS (6)
  - Lenticular opacities [Recovered/Resolved]
  - Visual impairment [Recovered/Resolved]
  - Corneal deposits [Recovered/Resolved]
  - Corneal oedema [Unknown]
  - Visual acuity reduced [Recovered/Resolved]
  - Cataract [Recovered/Resolved]
